FAERS Safety Report 4575354-6 (Version None)
Quarter: 2005Q1

REPORT INFORMATION
  Report Type: 
  Country: None (occurrence: None)
  Receive Date: 20050209
  Receipt Date: 20050131
  Transmission Date: 20050727
  Serious: Yes (Other)
  Sender: FDA-Public Use
  Company Number: PHNU2005DE00758

PATIENT
  Age: 28 Year
  Sex: Female

DRUGS (3)
  1. ZELMAC [Suspect]
     Indication: IRRITABLE BOWEL SYNDROME
     Dosage: 0.5 DF, ONCE/SINGLE
     Route: 048
     Dates: start: 20050129, end: 20050129
  2. METOPROLOL SUCCINATE [Concomitant]
     Indication: HYPERTENSION
  3. TIOTROPIUM BROMIDE [Concomitant]
     Indication: ASTHMA

REACTIONS (4)
  - ABDOMINAL PAIN [None]
  - ABDOMINAL RIGIDITY [None]
  - DIARRHOEA [None]
  - RECTAL HAEMORRHAGE [None]
